FAERS Safety Report 5225880-1 (Version None)
Quarter: 2007Q1

REPORT INFORMATION
  Report Type: 
  Country: None (occurrence: None)
  Receive Date: 20070130
  Receipt Date: 20070130
  Transmission Date: 20070707
  Serious: Yes (Life-Threatening, Disabling)
  Sender: FDA-Public Use
  Company Number: None

PATIENT
  Age: 74 Year
  Sex: Female

DRUGS (1)
  1. LISINOPRIL [Suspect]
     Dosage: 5MG DAILY PO
     Route: 048

REACTIONS (2)
  - ANGIOEDEMA [None]
  - RESPIRATORY FAILURE [None]
